FAERS Safety Report 5019943-3 (Version None)
Quarter: 2006Q2

REPORT INFORMATION
  Report Type: 
  Country: None (occurrence: None)
  Receive Date: 20060607
  Receipt Date: 20060601
  Transmission Date: 20061013
  Serious: Yes (Hospitalization)
  Sender: FDA-Public Use
  Company Number: 2006UW10544

PATIENT
  Age: 62 Year
  Sex: Male

DRUGS (7)
  1. CASODEX [Suspect]
     Indication: PROSTATE CANCER
     Route: 048
  2. CRESTOR [Concomitant]
  3. LISINOPRIL [Concomitant]
  4. ASPIRIN [Concomitant]
  5. GABAPENTIN [Concomitant]
  6. HYDROCHLOROTHIAZIDE [Concomitant]
  7. SOTALOL HCL [Concomitant]

REACTIONS (1)
  - TORSADE DE POINTES [None]
